FAERS Safety Report 8607485-5 (Version None)
Quarter: 2012Q3

REPORT INFORMATION
  Report Type: 
  Country: None (occurrence: None)
  Receive Date: 20120809
  Receipt Date: 20120809
  Transmission Date: 20120928
  Serious: Yes (Hospitalization)
  Sender: FDA-Public Use
  Company Number: None

PATIENT
  Age: 56 Year
  Sex: Male
  Weight: 210.5 kg

DRUGS (1)
  1. WARFARIN SODIUM [Suspect]
     Dosage: EVERY DAY PO
     Route: 048
     Dates: start: 20101026, end: 20120424

REACTIONS (2)
  - HAEMARTHROSIS [None]
  - INTERNATIONAL NORMALISED RATIO INCREASED [None]
